FAERS Safety Report 7267433-X (Version None)
Quarter: 2011Q1

REPORT INFORMATION
  Report Type: 
  Country: None (occurrence: None)
  Receive Date: 20110201
  Receipt Date: 20110126
  Transmission Date: 20110831
  Serious: Yes (Hospitalization)
  Sender: FDA-Public Use
  Company Number: FR-MEDIMMUNE-MEDI-0012347

PATIENT
  Age: 13 Month

DRUGS (1)
  1. SYNAGIS [Suspect]

REACTIONS (3)
  - OXYGEN CONSUMPTION INCREASED [None]
  - LUNG DISORDER [None]
  - COUGH [None]
